FAERS Safety Report 16404825 (Version 1)
Quarter: 2019Q2

REPORT INFORMATION
  Report Type: Report from Study
  Country: NL (occurrence: NL)
  Receive Date: 20190607
  Receipt Date: 20190607
  Transmission Date: 20190711
  Serious: Yes (Hospitalization)
  Sender: FDA-Public Use
  Company Number: NL-MYLANLABS-2019M1053269

PATIENT

DRUGS (5)
  1. FLUOROURACIL. [Suspect]
     Active Substance: FLUOROURACIL
     Indication: COLORECTAL CANCER
     Dosage: ON 22/OCT/2018, MOST RECENT DOSE WAS ADMINITERED.
     Route: 042
     Dates: start: 20181022
  2. BEVACIZUMAB. [Suspect]
     Active Substance: BEVACIZUMAB
     Indication: COLORECTAL CANCER
     Dosage: ON 05/NOV/2018, MOST RECENT DOSE WAS ADMINITERED.
     Route: 042
     Dates: start: 20181022
  3. OXALIPLATIN. [Suspect]
     Active Substance: OXALIPLATIN
     Indication: COLORECTAL CANCER
     Dosage: ON 05/NOV/2018, MOST RECENT DOSE WAS ADMINITERED.
     Route: 042
     Dates: start: 20181022
  4. IRINOTECAN [Suspect]
     Active Substance: IRINOTECAN
     Indication: COLORECTAL CANCER
     Dosage: ON 05/NOV/2018, MOST RECENT DOSE WAS ADMINITERED.
     Route: 042
     Dates: start: 20181022
  5. LEUCOVORIN                         /00566701/ [Suspect]
     Active Substance: LEUCOVORIN
     Indication: COLORECTAL CANCER
     Dosage: ON 05/NOV/2018, MOST RECENT DOSE WAS ADMINITERED.
     Route: 042
     Dates: start: 20181022

REACTIONS (1)
  - Duodenal ulcer [Unknown]

NARRATIVE: CASE EVENT DATE: 20181103
